FAERS Safety Report 8337329-0 (Version None)
Quarter: 2012Q2

REPORT INFORMATION
  Report Type: 
  Country: None (occurrence: None)
  Receive Date: 20120504
  Receipt Date: 20120426
  Transmission Date: 20120825
  Serious: Yes (Other)
  Sender: FDA-Public Use
  Company Number: US-ROXANE LABORATORIES, INC.-2012-RO-01132RO

PATIENT
  Age: 38 Year
  Sex: Female

DRUGS (8)
  1. VENLAFAXINE [Suspect]
     Indication: ANXIETY
  2. VENLAFAXINE [Suspect]
     Indication: DEPRESSION
  3. ALPRAZOLAM [Suspect]
     Indication: HEADACHE
     Route: 048
  4. ZOLPIDEM [Suspect]
     Indication: HEADACHE
  5. BUPROPION HCL [Suspect]
     Indication: ANXIETY
  6. BUPROPION HCL [Suspect]
     Indication: DEPRESSION
  7. PROPRANOLOL [Suspect]
     Indication: MIGRAINE PROPHYLAXIS
  8. CLONAZEPAM [Suspect]
     Indication: HEADACHE
     Route: 048

REACTIONS (3)
  - FEELING DRUNK [None]
  - AMNESIA [None]
  - DRUG INEFFECTIVE [None]
